FAERS Safety Report 6018668-5 (Version None)
Quarter: 2008Q4

REPORT INFORMATION
  Report Type: 
  Country: None (occurrence: None)
  Receive Date: 20081222
  Receipt Date: 20081210
  Transmission Date: 20090506
  Serious: Yes (Hospitalization)
  Sender: FDA-Public Use
  Company Number: APP200801223

PATIENT
  Age: 2 Year

DRUGS (3)
  1. CLINDAMYCIN PHOSPHATE [Suspect]
     Indication: ARTHRITIS BACTERIAL
     Dosage: 140 MG, 1 IN 8 HR, INTRAVENOUS
     Route: 042
     Dates: start: 20081201, end: 20081201
  2. CEFTRIAXONE [Concomitant]
  3. ECLIPSE HOME PUMP [Suspect]

REACTIONS (4)
  - DRUG DELIVERY SYSTEM MALFUNCTION [None]
  - INFUSION RELATED REACTION [None]
  - PETECHIAE [None]
  - RASH MACULO-PAPULAR [None]
